FAERS Safety Report 4967708-0 (Version None)
Quarter: 2006Q2

REPORT INFORMATION
  Report Type: 
  Country: None (occurrence: None)
  Receive Date: 20060410
  Receipt Date: 20051207
  Transmission Date: 20061013
  Serious: Yes (Hospitalization)
  Sender: FDA-Public Use
  Company Number: US-MERCK-0512USA01383

PATIENT
  Age: 74 Year
  Sex: Male
  Weight: 111 kg

DRUGS (1)
  1. VIOXX [Suspect]
     Indication: ARTHRITIS
     Route: 048
     Dates: start: 19990101, end: 20040901

REACTIONS (8)
  - CEREBROVASCULAR ACCIDENT [None]
  - DEPRESSION [None]
  - DIVERTICULITIS [None]
  - HEART RATE IRREGULAR [None]
  - HIP FRACTURE [None]
  - PNEUMONIA [None]
  - REHABILITATION THERAPY [None]
  - ROAD TRAFFIC ACCIDENT [None]
